FAERS Safety Report 23307672 (Version 6)
Quarter: 2024Q1

REPORT INFORMATION
  Report Type: Spontaneous
  Country: CA (occurrence: CA)
  Receive Date: 20231218
  Receipt Date: 20240125
  Transmission Date: 20240410
  Serious: Yes (Death, Life-Threatening, Other)
  Sender: FDA-Public Use
  Company Number: CA-PFIZER INC-PV202300177206

PATIENT
  Age: 53 Year
  Sex: Female
  Weight: 98.8 kg

DRUGS (20)
  1. ZIRABEV [Suspect]
     Active Substance: BEVACIZUMAB-BVZR
     Dosage: 990 MG
     Dates: start: 20231024
  2. ZIRABEV [Suspect]
     Active Substance: BEVACIZUMAB-BVZR
     Dosage: 990 MG
     Dates: start: 20231024
  3. ZIRABEV [Suspect]
     Active Substance: BEVACIZUMAB-BVZR
     Dosage: 990 MG
     Dates: start: 20231024
  4. ZIRABEV [Suspect]
     Active Substance: BEVACIZUMAB-BVZR
     Dosage: 990 MG
     Dates: start: 20231106
  5. ZIRABEV [Suspect]
     Active Substance: BEVACIZUMAB-BVZR
     Dosage: 990 MG
     Dates: start: 20231106
  6. ZIRABEV [Suspect]
     Active Substance: BEVACIZUMAB-BVZR
     Dosage: 990 MG
     Dates: start: 20231120
  7. ZIRABEV [Suspect]
     Active Substance: BEVACIZUMAB-BVZR
     Dosage: 990 MG
     Dates: start: 20231120
  8. ZIRABEV [Suspect]
     Active Substance: BEVACIZUMAB-BVZR
     Dosage: 990 MG
     Dates: start: 20231204
  9. ZIRABEV [Suspect]
     Active Substance: BEVACIZUMAB-BVZR
     Dosage: 990 MG
     Dates: start: 20231204
  10. ZIRABEV [Suspect]
     Active Substance: BEVACIZUMAB-BVZR
     Dosage: 990 MG
     Dates: start: 20231218
  11. ZIRABEV [Suspect]
     Active Substance: BEVACIZUMAB-BVZR
     Dosage: 990 MG
     Dates: start: 20240101
  12. ZIRABEV [Suspect]
     Active Substance: BEVACIZUMAB-BVZR
     Dosage: 990 MG
     Dates: start: 20240101
  13. ACETAMINOPHEN [Concomitant]
     Active Substance: ACETAMINOPHEN
     Dosage: UNK
  14. CLOBAZAM [Concomitant]
     Active Substance: CLOBAZAM
     Dosage: UNK
  15. DEXAMETHASONE [Concomitant]
     Active Substance: DEXAMETHASONE
     Dosage: UNK
  16. LACOSAMIDE [Concomitant]
     Active Substance: LACOSAMIDE
     Dosage: UNK
  17. LEVETIRACETAM [Concomitant]
     Active Substance: LEVETIRACETAM
     Dosage: UNK
  18. MIRABEGRON [Concomitant]
     Active Substance: MIRABEGRON
     Dosage: UNK
  19. PANTOPRAZOLE [Concomitant]
     Active Substance: PANTOPRAZOLE
     Dosage: UNK
  20. VITAMIN D3 [Concomitant]
     Active Substance: CHOLECALCIFEROL
     Dosage: UNK

REACTIONS (19)
  - Death [Fatal]
  - General physical health deterioration [Unknown]
  - Pain [Unknown]
  - Headache [Unknown]
  - Partial seizures [Recovered/Resolved]
  - Blood pressure diastolic increased [Recovered/Resolved]
  - Oedema [Unknown]
  - Muscular weakness [Unknown]
  - Tremor [Unknown]
  - Mobility decreased [Recovered/Resolved]
  - Gait disturbance [Recovered/Resolved]
  - Fatigue [Unknown]
  - Movement disorder [Unknown]
  - Asthenia [Recovered/Resolved]
  - Fine motor skill dysfunction [Recovered/Resolved]
  - Dehydration [Unknown]
  - Poor venous access [Unknown]
  - Contusion [Unknown]
  - Somnolence [Unknown]

NARRATIVE: CASE EVENT DATE: 20230101
